FAERS Safety Report 4505411-1 (Version None)
Quarter: 2004Q4

REPORT INFORMATION
  Report Type: 
  Country: None (occurrence: None)
  Receive Date: 20041118
  Receipt Date: 20041118
  Transmission Date: 20050328
  Serious: Yes (Hospitalization)
  Sender: FDA-Public Use
  Company Number: None

PATIENT
  Age: 63 Year
  Sex: Male

DRUGS (8)
  1. LITHIUM [Suspect]
     Indication: BIPOLAR I DISORDER
  2. PHENYTOIN [Concomitant]
  3. MIRTAZAPINE [Concomitant]
  4. ESCITALOPRAM [Concomitant]
  5. TIAGABINE [Concomitant]
  6. TOPIRMATE [Concomitant]
  7. GABAPENTIN [Concomitant]
  8. DONEPEZIL HCL [Concomitant]

REACTIONS (6)
  - CONFUSIONAL STATE [None]
  - DRUG LEVEL ABOVE THERAPEUTIC [None]
  - GAIT DISTURBANCE [None]
  - MEDICATION ERROR [None]
  - TREATMENT NONCOMPLIANCE [None]
  - TREMOR [None]
